FAERS Safety Report 25269462 (Version 1)
Quarter: 2025Q2

REPORT INFORMATION
  Report Type: Spontaneous
  Country: IN (occurrence: IN)
  Receive Date: 20250505
  Receipt Date: 20250505
  Transmission Date: 20250717
  Serious: Yes (Death, Hospitalization)
  Sender: FRESENIUS KABI
  Company Number: IN-FreseniusKabi-FK202506389

PATIENT
  Age: 60 Year
  Sex: Female

DRUGS (2)
  1. GEMCITABINE HYDROCHLORIDE [Suspect]
     Active Substance: GEMCITABINE HYDROCHLORIDE
     Indication: Product used for unknown indication
     Dates: start: 20250423, end: 20250423
  2. CISPLATIN [Concomitant]
     Active Substance: CISPLATIN
     Indication: Product used for unknown indication
     Dates: start: 20250423, end: 20250423

REACTIONS (2)
  - Tachycardia [Fatal]
  - Respiratory distress [Fatal]

NARRATIVE: CASE EVENT DATE: 20250423
